FAERS Safety Report 12762992 (Version 3)
Quarter: 2017Q2

REPORT INFORMATION
  Report Type: Spontaneous
  Country: US (occurrence: US)
  Receive Date: 20160920
  Receipt Date: 20170424
  Transmission Date: 20170830
  Serious: No
  Sender: FDA-Public Use
  Company Number: US-PFIZER INC-2016438321

PATIENT
  Age: 6 Year
  Sex: Male

DRUGS (3)
  1. GENOTROPIN [Suspect]
     Active Substance: SOMATROPIN
     Dosage: 0.4
  2. GENOTROPIN [Suspect]
     Active Substance: SOMATROPIN
     Indication: BODY HEIGHT BELOW NORMAL
     Dosage: 0.8(INJECTED EVERY EVENING INJECTED IN LEFT OR RIGHT THIGH OR BUTT)
     Dates: start: 20160229
  3. GENOTROPIN [Suspect]
     Active Substance: SOMATROPIN
     Dosage: 0.6

REACTIONS (5)
  - Injection site pain [Unknown]
  - Headache [Unknown]
  - Injection site haemorrhage [Unknown]
  - Injection site swelling [Recovered/Resolved]
  - Incorrect dose administered [Not Recovered/Not Resolved]

NARRATIVE: CASE EVENT DATE: 201702
